FAERS Safety Report 5835765-5 (Version None)
Quarter: 2008Q3

REPORT INFORMATION
  Report Type: 
  Country: None (occurrence: None)
  Receive Date: 20080806
  Receipt Date: 20080725
  Transmission Date: 20090109
  Serious: Yes (Hospitalization)
  Sender: FDA-Public Use
  Company Number: JP-SANOFI-SYNTHELABO-A01200809001

PATIENT
  Age: 31 Year
  Sex: Female

DRUGS (7)
  1. LANDSEN [Concomitant]
     Indication: MULTIPLE DRUG OVERDOSE INTENTIONAL
     Route: 048
     Dates: start: 20080715, end: 20080715
  2. DEPAS [Concomitant]
     Indication: MULTIPLE DRUG OVERDOSE INTENTIONAL
     Route: 048
     Dates: start: 20080715, end: 20080715
  3. U PAN [Concomitant]
     Indication: MULTIPLE DRUG OVERDOSE INTENTIONAL
     Route: 048
     Dates: start: 20080715, end: 20080715
  4. SEROQUEL [Suspect]
     Indication: MULTIPLE DRUG OVERDOSE INTENTIONAL
     Route: 048
     Dates: start: 20080715, end: 20080715
  5. AMOBAN [Concomitant]
     Indication: MULTIPLE DRUG OVERDOSE INTENTIONAL
     Route: 048
     Dates: start: 20080715, end: 20080715
  6. MYSLEE [Suspect]
     Indication: MULTIPLE DRUG OVERDOSE INTENTIONAL
     Route: 048
     Dates: start: 20080715, end: 20080715
  7. ZYPREXA [Concomitant]
     Indication: MULTIPLE DRUG OVERDOSE INTENTIONAL
     Route: 048
     Dates: start: 20080715, end: 20080715

REACTIONS (2)
  - DELIRIUM [None]
  - MULTIPLE DRUG OVERDOSE INTENTIONAL [None]
